APPROVED DRUG PRODUCT: TRANEXAMIC ACID
Active Ingredient: TRANEXAMIC ACID
Strength: 1GM/100ML (10MG/ML)
Dosage Form/Route: SOLUTION;INTRAVENOUS
Application: A217155 | Product #001 | TE Code: AP
Applicant: AMNEAL EU LTD
Approved: Oct 16, 2023 | RLD: No | RS: No | Type: RX